FAERS Safety Report 10175445 (Version 1)
Quarter: 2014Q2

REPORT INFORMATION
  Report Type: Spontaneous
  Country: GB (occurrence: GB)
  Receive Date: 20140515
  Receipt Date: 20140515
  Transmission Date: 20141212
  Serious: Yes (Hospitalization)
  Sender: FDA-Public Use
  Company Number: PHFR2014GB003412

PATIENT
  Age: 37 Year
  Sex: Female

DRUGS (4)
  1. CARBAMAZEPINE [Suspect]
     Dosage: UNK UKN, QD
     Route: 048
  2. CARBAMAZEPINE [Suspect]
     Dosage: 20000 MG, QD
     Route: 048
  3. ZAPONEX [Suspect]
     Dosage: 245 UKN, UNK
     Route: 048
     Dates: start: 20120309
  4. ZAPONEX [Suspect]
     Dosage: 245 UKN, UNK
     Route: 048
     Dates: start: 20140313

REACTIONS (6)
  - Depressed level of consciousness [Recovered/Resolved]
  - Platelet count increased [Not Recovered/Not Resolved]
  - Intentional overdose [Recovered/Resolved]
  - Metabolic acidosis [Recovered/Resolved]
  - White blood cell count decreased [Recovered/Resolved]
  - Platelet count decreased [Recovered/Resolved]
